FAERS Safety Report 10253213 (Version 1)
Quarter: 2014Q2

REPORT INFORMATION
  Report Type: Spontaneous
  Country: US (occurrence: US)
  Receive Date: 20140623
  Receipt Date: 20140623
  Transmission Date: 20141212
  Serious: No
  Sender: FDA-Public Use
  Company Number: US-ZOGENIX, INC.-2011ZX000440

PATIENT
  Sex: Female
  Weight: 49.03 kg

DRUGS (7)
  1. SUMAVEL DOSEPRO [Suspect]
     Indication: MIGRAINE
  2. WELLBUTRIN [Concomitant]
     Indication: DEPRESSION
     Route: 048
  3. PRISTIQ [Concomitant]
     Indication: DEPRESSION
     Route: 048
  4. AMBIEN [Concomitant]
     Indication: INSOMNIA
     Route: 048
  5. DESYREL [Concomitant]
     Indication: INSOMNIA
  6. AVONEX [Concomitant]
     Indication: MULTIPLE SCLEROSIS
     Route: 030
  7. SUMATRIPTAN [Concomitant]
     Indication: MIGRAINE

REACTIONS (2)
  - Drug ineffective [Recovered/Resolved]
  - Incorrect dose administered by device [Recovered/Resolved]
